FAERS Safety Report 9006375 (Version 1)
Quarter: 2013Q1

REPORT INFORMATION
  Report Type: Spontaneous
  Country: US (occurrence: US)
  Receive Date: 20130110
  Receipt Date: 20130110
  Transmission Date: 20140127
  Serious: Yes (Other)
  Sender: FDA-Public Use
  Company Number: US-AMGEN-USASP2013000357

PATIENT
  Age: 81 Year
  Sex: Female

DRUGS (5)
  1. PROLIA [Suspect]
     Indication: OSTEOPOROSIS POSTMENOPAUSAL
     Dosage: UNK
  2. RAMIPRIL [Concomitant]
     Dosage: UNK
  3. ATORVASTATIN [Concomitant]
     Dosage: UNK
  4. CALCIUM [Concomitant]
     Dosage: UNK
  5. VITAMIN D NOS [Concomitant]
     Dosage: UNK

REACTIONS (6)
  - Cerebrovascular accident [Unknown]
  - Foot fracture [Unknown]
  - Arthritis [Unknown]
  - Arthralgia [Unknown]
  - Groin pain [Unknown]
  - Musculoskeletal pain [Unknown]
